FAERS Safety Report 21503892 (Version 1)
Quarter: 2022Q4

REPORT INFORMATION
  Report Type: Report from Study
  Country: DE (occurrence: DE)
  Receive Date: 20221025
  Receipt Date: 20221025
  Transmission Date: 20230112
  Serious: Yes (Hospitalization, Other)
  Sender: FDA-Public Use
  Company Number: DE-NOVARTISPH-NVSC2022DE238497

PATIENT
  Sex: Male

DRUGS (2)
  1. ERELZI [Suspect]
     Active Substance: ETANERCEPT-SZZS
     Indication: Product used for unknown indication
     Dosage: 50 MG
     Route: 065
     Dates: start: 201709, end: 201901
  2. METHOTREXATE [Suspect]
     Active Substance: METHOTREXATE
     Indication: Product used for unknown indication
     Dosage: 15,0
     Route: 065

REACTIONS (1)
  - Prostate cancer [Not Recovered/Not Resolved]

NARRATIVE: CASE EVENT DATE: 20211201
